FAERS Safety Report 8307997-8 (Version None)
Quarter: 2012Q2

REPORT INFORMATION
  Report Type: 
  Country: None (occurrence: None)
  Receive Date: 20120424
  Receipt Date: 20120417
  Transmission Date: 20120825
  Serious: Yes (Death)
  Sender: FDA-Public Use
  Company Number: JP-GLAXOSMITHKLINE-B0796368A

PATIENT
  Sex: Male

DRUGS (7)
  1. FLUNITRAZEPAM [Concomitant]
     Indication: INSOMNIA
     Dosage: 4MG PER DAY
     Route: 048
     Dates: start: 20100114
  2. DEPAKENE [Concomitant]
     Indication: AFFECTIVE DISORDER
     Dosage: 800MG PER DAY
     Route: 048
     Dates: start: 20110622
  3. ZYPREXA [Concomitant]
     Indication: AFFECTIVE DISORDER
     Dosage: 5MG PER DAY
     Route: 048
     Dates: start: 20110713
  4. EBRANTIL [Concomitant]
     Indication: NEUROGENIC BLADDER
     Dosage: 60MG PER DAY
     Route: 048
     Dates: start: 20100114
  5. LAMICTAL [Suspect]
     Indication: AFFECTIVE DISORDER
     Dosage: 25MG PER DAY
     Route: 048
     Dates: start: 20120208, end: 20120221
  6. UNKNOWN [Concomitant]
     Indication: INSOMNIA
     Dosage: 5MG PER DAY
     Route: 048
     Dates: start: 20100114
  7. LAMICTAL [Suspect]
     Dosage: 50MG PER DAY
     Route: 048
     Dates: start: 20120222, end: 20120323

REACTIONS (4)
  - RASH [None]
  - PRURITUS [None]
  - COMPLETED SUICIDE [None]
  - ERYTHEMA [None]
